FAERS Safety Report 6409135-5 (Version None)
Quarter: 2009Q4

REPORT INFORMATION
  Report Type: 
  Country: None (occurrence: None)
  Receive Date: 20091021
  Receipt Date: 20091008
  Transmission Date: 20100525
  Serious: Yes (Other)
  Sender: FDA-Public Use
  Company Number: PHEH2009US09388

PATIENT
  Sex: Male

DRUGS (1)
  1. EXJADE [Suspect]
     Dosage: 1250 MG DAILY
     Route: 048
     Dates: start: 20070612, end: 20090908

REACTIONS (4)
  - BLINDNESS [None]
  - CEREBROVASCULAR ACCIDENT [None]
  - INFLUENZA [None]
  - MALAISE [None]
